FAERS Safety Report 4980199-9 (Version None)
Quarter: 2006Q2

REPORT INFORMATION
  Report Type: 
  Country: None (occurrence: None)
  Receive Date: 20060424
  Receipt Date: 20060215
  Transmission Date: 20061013
  Serious: Yes (Life-Threatening, Hospitalization)
  Sender: FDA-Public Use
  Company Number: FR-NOVOPROD-250922

PATIENT
  Age: 52 Year
  Sex: Male
  Weight: 71 kg

DRUGS (10)
  1. NOVONORM [Suspect]
     Indication: DIABETES MELLITUS
     Dosage: 6 MG, QD
     Dates: start: 20041004, end: 20051004
  2. BISOPROLOL [Concomitant]
  3. FOLIC ACID [Concomitant]
  4. ALLOPURINOL [Concomitant]
  5. BROMAZEPAM [Concomitant]
  6. VASTEN [Concomitant]
  7. PLAVIX [Concomitant]
  8. MEDIATENSYL [Concomitant]
  9. LERCAN [Concomitant]
  10. TRIATEC [Concomitant]

REACTIONS (1)
  - HYPOGLYCAEMIC COMA [None]
